FAERS Safety Report 10210429 (Version 2)
Quarter: 2014Q2

REPORT INFORMATION
  Report Type: Spontaneous
  Country: IT (occurrence: None)
  Receive Date: 20140528
  Receipt Date: 20140611
  Transmission Date: 20141212
  Serious: Yes (Other)
  Sender: FDA-Public Use
  Company Number: 2352494

PATIENT
  Age: 42 Year
  Sex: Female

DRUGS (2)
  1. OXALIPLATIN [Suspect]
     Indication: OVARIAN CANCER METASTATIC
     Dosage: 120 MG MILLIGRAM(S), CYCLICAL, INTRAVENOUS (NOT OTHERWISE SPECIFIED)?
     Route: 042
     Dates: start: 20140128, end: 20140512
  2. ENDOXAN [Suspect]
     Indication: OVARIAN CANCER METASTATIC
     Dosage: 1020 MG MILLIGRAM(S), CYCLICAL, INTRAVENOUS (NOT OTHERWISE SPECIFIED)?
     Route: 042
     Dates: start: 20140128, end: 20140512

REACTIONS (5)
  - Loss of consciousness [None]
  - Nausea [None]
  - Vomiting [None]
  - Tremor [None]
  - Infusion related reaction [None]
